FAERS Safety Report 6214555-8 (Version None)
Quarter: 2009Q2

REPORT INFORMATION
  Report Type: 
  Country: None (occurrence: None)
  Receive Date: 20090604
  Receipt Date: 20090529
  Transmission Date: 20091009
  Serious: Yes (Other)
  Sender: FDA-Public Use
  Company Number: GB-AVENTIS-200911950GDDC

PATIENT
  Age: 39 Year
  Sex: Female

DRUGS (11)
  1. ARAVA [Suspect]
     Indication: RHEUMATOID ARTHRITIS
     Route: 048
     Dates: start: 20031002, end: 20040130
  2. ARAVA [Suspect]
     Dates: start: 20040610, end: 20081215
  3. NAPROXEN [Suspect]
     Dosage: DOSE: UNK
  4. LANSOPRAZOLE [Suspect]
     Dosage: DOSE: UNK
  5. CODEINE PHOSPHATE [Suspect]
     Dosage: DOSE: UNK
  6. PARACETAMOL [Suspect]
     Dosage: DOSE: UNK
  7. AMITRIPTLINE HYDROCHLORIDE TAB [Suspect]
     Dosage: DOSE: UNK
  8. NAPROXEN [Concomitant]
     Dosage: DOSE: UNK
  9. CODEINE PHOSPHATE [Concomitant]
     Dosage: DOSE: UNK
  10. PARACETAMOL [Concomitant]
     Dosage: DOSE: UNK
  11. AMITRIPTLINE HYDROCHLORIDE TAB [Concomitant]
     Dosage: DOSE: UNK

REACTIONS (2)
  - ABORTION SPONTANEOUS [None]
  - DRUG EXPOSURE DURING PREGNANCY [None]
